FAERS Safety Report 13456197 (Version 1)
Quarter: 2017Q2

REPORT INFORMATION
  Report Type: Spontaneous
  Country: ES (occurrence: ES)
  Receive Date: 20170419
  Receipt Date: 20170419
  Transmission Date: 20170830
  Serious: Yes (Other)
  Sender: FDA-Public Use
  Company Number: ES-UCBSA-2016019598

PATIENT
  Age: 32 Year
  Sex: Female

DRUGS (3)
  1. CIMZIA [Suspect]
     Active Substance: CERTOLIZUMAB PEGOL
     Indication: OFF LABEL USE
  2. HUMIRA [Concomitant]
     Active Substance: ADALIMUMAB
     Indication: UVEITIS
     Dosage: UNK
  3. CIMZIA [Suspect]
     Active Substance: CERTOLIZUMAB PEGOL
     Indication: UVEITIS
     Dosage: 200 MG, EV 15 DAYS
     Dates: start: 20150701

REACTIONS (3)
  - Pregnancy [Unknown]
  - Off label use [Unknown]
  - Premature delivery [Unknown]

NARRATIVE: CASE EVENT DATE: 20151023
